FAERS Safety Report 13456196 (Version 1)
Quarter: 2017Q2

REPORT INFORMATION
  Report Type: Spontaneous
  Country: US (occurrence: US)
  Receive Date: 20170419
  Receipt Date: 20170419
  Transmission Date: 20170830
  Serious: No
  Sender: FDA-Public Use
  Company Number: None

PATIENT
  Age: 71 Year
  Sex: Female
  Weight: 58.57 kg

DRUGS (3)
  1. BABY ASPIRIN [Concomitant]
     Active Substance: ASPIRIN
  2. BACITRACIN. [Suspect]
     Active Substance: BACITRACIN
     Indication: EYELID IRRITATION
     Dosage: 500 UNITS OF BACITRACIN IN BASE OINTMENT ON THE EYE LID?
     Route: 061
     Dates: start: 20170405, end: 20170406
  3. AMLODIPINE [Concomitant]
     Active Substance: AMLODIPINE BESYLATE

REACTIONS (3)
  - Ocular hyperaemia [None]
  - Superficial injury of eye [None]
  - Vision blurred [None]

NARRATIVE: CASE EVENT DATE: 20170405
